FAERS Safety Report 8443561-8 (Version None)
Quarter: 2012Q2

REPORT INFORMATION
  Report Type: 
  Country: None (occurrence: None)
  Receive Date: 20120618
  Receipt Date: 20120612
  Transmission Date: 20120825
  Serious: No
  Sender: FDA-Public Use
  Company Number: US-PFIZER INC-2012141691

PATIENT
  Sex: Male
  Weight: 109 kg

DRUGS (6)
  1. PREDNISONE [Concomitant]
     Dosage: UNK
  2. ZOCOR [Concomitant]
     Dosage: UNK
  3. LISINOPRIL [Concomitant]
     Dosage: UNK
  4. IMURAN [Concomitant]
     Dosage: UNK
  5. LYRICA [Suspect]
     Indication: NEUROPATHY PERIPHERAL
     Dosage: 300 MG, 2X/DAY
     Route: 048
     Dates: start: 20120101
  6. LASIX [Concomitant]
     Dosage: UNK

REACTIONS (12)
  - DRUG INEFFECTIVE [None]
  - DRUG TOLERANCE [None]
  - ANTINEUTROPHIL CYTOPLASMIC ANTIBODY INCREASED [None]
  - BLOOD UREA ABNORMAL [None]
  - WHITE BLOOD CELL DISORDER [None]
  - RED CELL DISTRIBUTION WIDTH ABNORMAL [None]
  - PAIN [None]
  - MEAN CELL VOLUME ABNORMAL [None]
  - DECREASED APPETITE [None]
  - CONSTIPATION [None]
  - BLOOD CHOLESTEROL INCREASED [None]
  - RED BLOOD CELL COUNT ABNORMAL [None]
